FAERS Safety Report 9417210 (Version 1)
Quarter: 2013Q3

REPORT INFORMATION
  Report Type: Spontaneous
  Country: US (occurrence: US)
  Receive Date: 20130724
  Receipt Date: 20130724
  Transmission Date: 20140515
  Serious: No
  Sender: FDA-Public Use
  Company Number: US-PFIZER INC-2013212242

PATIENT
  Age: 71 Year
  Sex: Female
  Weight: 58.96 kg

DRUGS (4)
  1. INLYTA [Suspect]
     Indication: RENAL CELL CARCINOMA
     Dosage: 5 MG, 2X/DAY
     Dates: start: 201304, end: 20130530
  2. INLYTA [Suspect]
     Dosage: 5 MG, 2X/DAY
     Dates: start: 20130625, end: 20130710
  3. ATENOLOL [Concomitant]
     Indication: HYPERTENSION
     Dosage: 50 MG, 1X/DAY
  4. CLONIDINE [Concomitant]
     Indication: HYPERTENSION
     Dosage: 150 MG, 2X/DAY

REACTIONS (2)
  - Stomatitis [Unknown]
  - Decreased appetite [Unknown]
